FAERS Safety Report 19021221 (Version 6)
Quarter: 2022Q3

REPORT INFORMATION
  Report Type: Report from Study
  Country: BR (occurrence: BR)
  Receive Date: 20210317
  Receipt Date: 20220824
  Transmission Date: 20221027
  Serious: Yes (Death, Hospitalization)
  Sender: FDA-Public Use
  Company Number: BR-DSJP-DSE-2021-107082AA

PATIENT
  Age: 73 Year
  Sex: Female
  Weight: 78 kg

DRUGS (1)
  1. EDOXABAN [Suspect]
     Active Substance: EDOXABAN
     Indication: Atrial fibrillation
     Dosage: 60 MG, QD
     Route: 065
     Dates: start: 20201118, end: 202102

REACTIONS (4)
  - Thrombosis [Fatal]
  - Bladder obstruction [Fatal]
  - Urinary retention [Fatal]
  - Pain [Fatal]

NARRATIVE: CASE EVENT DATE: 20210215
